FAERS Safety Report 26129612 (Version 1)
Quarter: 2025Q4

REPORT INFORMATION
  Report Type: Report from Study
  Country: JP (occurrence: JP)
  Receive Date: 20251208
  Receipt Date: 20251208
  Transmission Date: 20260117
  Serious: Yes (Death, Other)
  Sender: ROCHE
  Company Number: JP-ROCHE-10000450765

PATIENT

DRUGS (2)
  1. POLATUZUMAB VEDOTIN [Suspect]
     Active Substance: POLATUZUMAB VEDOTIN
     Indication: B-cell lymphoma
     Route: 065
  2. BENDAMUSTINE [Suspect]
     Active Substance: BENDAMUSTINE
     Indication: B-cell lymphoma
     Route: 065

REACTIONS (13)
  - COVID-19 [Fatal]
  - Interstitial lung disease [Unknown]
  - Pneumonitis aspiration [Unknown]
  - Pneumonia bacterial [Unknown]
  - Pneumothorax [Unknown]
  - Infectious pleural effusion [Unknown]
  - Fatigue [Unknown]
  - Immune thrombocytopenia [Unknown]
  - Renal failure [Unknown]
  - Thrombosis [Unknown]
  - Gastrointestinal haemorrhage [Unknown]
  - Cardiac failure [Unknown]
  - Dysgeusia [Unknown]
